FAERS Safety Report 5757241-0 (Version None)
Quarter: 2008Q2

REPORT INFORMATION
  Report Type: 
  Country: None (occurrence: None)
  Receive Date: 20080507
  Receipt Date: 20071030
  Transmission Date: 20081010
  Serious: Yes (Hospitalization)
  Sender: FDA-Public Use
  Company Number: 239384K07USA

PATIENT
  Age: 17 Year
  Sex: Male

DRUGS (2)
  1. REBIF [Suspect]
     Indication: OFF LABEL USE
     Dosage: 44 MCG, 3 IN 1 WEEKS : 44 MCG, 3 IN 1 WEEKS
     Dates: start: 20050210, end: 20071001
  2. REBIF [Suspect]
     Indication: OFF LABEL USE
     Dosage: 44 MCG, 3 IN 1 WEEKS : 44 MCG, 3 IN 1 WEEKS
     Dates: start: 20071031

REACTIONS (6)
  - ATAXIA [None]
  - DIPLOPIA [None]
  - DIZZINESS [None]
  - DYSARTHRIA [None]
  - MULTIPLE SCLEROSIS RELAPSE [None]
  - VERTIGO [None]
